FAERS Safety Report 6597840-X (Version None)
Quarter: 2010Q1

REPORT INFORMATION
  Report Type: 
  Country: None (occurrence: None)
  Receive Date: 20100216
  Receipt Date: 20100204
  Transmission Date: 20100710
  Serious: No
  Sender: FDA-Public Use
  Company Number: 2010AL000750

PATIENT
  Age: 35 Year
  Sex: Male

DRUGS (1)
  1. HYDROCORTISONE CREAM [Suspect]
     Indication: ECZEMA
     Dosage: 1 PCT;TID;TOP
     Route: 061

REACTIONS (3)
  - CATARACT [None]
  - INTRAOCULAR PRESSURE INCREASED [None]
  - NARROW ANTERIOR CHAMBER ANGLE [None]
